FAERS Safety Report 17968501 (Version 4)
Quarter: 2020Q3

REPORT INFORMATION
  Report Type: Report from Study
  Country: US (occurrence: US)
  Receive Date: 20200701
  Receipt Date: 20200728
  Transmission Date: 20201103
  Serious: Yes (Other)
  Sender: FDA-Public Use
  Company Number: NVSC2020US183961

PATIENT
  Age: 51 Year
  Sex: Female
  Weight: 89.36 kg

DRUGS (2)
  1. GILENYA [Suspect]
     Active Substance: FINGOLIMOD HYDROCHLORIDE
     Indication: RELAPSING-REMITTING MULTIPLE SCLEROSIS
     Dosage: 0.5 MG, QD
     Route: 048
     Dates: start: 20200626
  2. GILENYA [Suspect]
     Active Substance: FINGOLIMOD HYDROCHLORIDE
     Indication: MULTIPLE SCLEROSIS

REACTIONS (6)
  - Dizziness [Unknown]
  - Heart rate decreased [Recovered/Resolved]
  - Small fibre neuropathy [Unknown]
  - Limb discomfort [Unknown]
  - Autoimmune thyroiditis [Unknown]
  - Back pain [Unknown]

NARRATIVE: CASE EVENT DATE: 20200626
